FAERS Safety Report 4717308-2 (Version None)
Quarter: 2005Q3

REPORT INFORMATION
  Report Type: 
  Country: None (occurrence: None)
  Receive Date: 20050719
  Receipt Date: 20050617
  Transmission Date: 20060218
  Serious: Yes (Hospitalization, Other)
  Sender: FDA-Public Use
  Company Number: PHNR2005AU01005

PATIENT
  Age: 47 Year
  Sex: Male

DRUGS (2)
  1. TEGRETOL [Suspect]
     Indication: TRIGEMINAL NEURALGIA
     Dosage: UNK, UNK
     Dates: start: 20010101
  2. TEGRETOL [Suspect]
     Dosage: OVERDOSED ON 6G
     Dates: start: 20030106, end: 20030106

REACTIONS (6)
  - CEREBRAL DISORDER [None]
  - COGNITIVE DISORDER [None]
  - DEMENTIA [None]
  - DEPRESSION [None]
  - DRUG LEVEL INCREASED [None]
  - OVERDOSE [None]
